FAERS Safety Report 12867630 (Version 2)
Quarter: 2016Q4

REPORT INFORMATION
  Report Type: Spontaneous
  Country: JP (occurrence: JP)
  Receive Date: 20161020
  Receipt Date: 20161111
  Transmission Date: 20170207
  Serious: Yes (Other)
  Sender: FDA-Public Use
  Company Number: JP-SA-2016SA189433

PATIENT
  Age: 62 Year
  Sex: Male

DRUGS (1)
  1. ONETAXOTERE [Suspect]
     Active Substance: DOCETAXEL
     Indication: LUNG NEOPLASM MALIGNANT
     Route: 065

REACTIONS (4)
  - Pancreatitis [Unknown]
  - Acute myeloid leukaemia [Unknown]
  - White blood cell count decreased [Unknown]
  - Condition aggravated [Unknown]
